FAERS Safety Report 9170332 (Version 1)
Quarter: 2013Q1

REPORT INFORMATION
  Report Type: Spontaneous
  Country: US (occurrence: US)
  Receive Date: 20130319
  Receipt Date: 20130319
  Transmission Date: 20140127
  Serious: Yes (Death)
  Sender: FDA-Public Use
  Company Number: US-BAYER-2013-032661

PATIENT
  Sex: Female
  Weight: 82 kg

DRUGS (12)
  1. YASMIN [Suspect]
     Dosage: UNK
  2. TRAZODONE [Concomitant]
     Dosage: 50 MG, TABLET
  3. IBUPIRAC [IBUPROFEN] [Concomitant]
     Dosage: 800 MG, TABLETS
  4. DIAZEPAM [Concomitant]
     Dosage: 10 MG, TABLET
  5. CITALOPRAM [Concomitant]
     Dosage: 20 MG, TABLETS
  6. CYANOCOBALAMIN [Concomitant]
     Dosage: 1000 MCG/ML
  7. HYDROCODONE COMPOUND [Concomitant]
     Dosage: 5-500 MG TABLETS
  8. ACETAMINOPHEN [Concomitant]
     Dosage: 5-500MG TABLETS
  9. CYCLOBENZAPRINE [Concomitant]
     Dosage: 10 MG, TABLETS
  10. FLUTICASONE [Concomitant]
     Dosage: 50 MCG
     Route: 045
  11. FAMVIR [FAMCICLOVIR] [Concomitant]
     Dosage: 500 MG, TABLETS
  12. OXYCODONE [Concomitant]
     Dosage: 5-325 MG TABLETS

REACTIONS (3)
  - Pulmonary embolism [Fatal]
  - Deep vein thrombosis [Fatal]
  - Ankle fracture [Fatal]
